FAERS Safety Report 25685415 (Version 2)
Quarter: 2025Q3

REPORT INFORMATION
  Report Type: Report from Study
  Country: US (occurrence: US)
  Receive Date: 20250815
  Receipt Date: 20250929
  Transmission Date: 20251020
  Serious: Yes (Hospitalization)
  Sender: ROCHE
  Company Number: US-ROCHE-10000046868

PATIENT
  Sex: Female

DRUGS (29)
  1. MYCOPHENOLATE MOFETIL [Suspect]
     Active Substance: MYCOPHENOLATE MOFETIL
     Indication: Interstitial lung disease
     Route: 048
  2. ACETAMINOPHEN [Concomitant]
     Active Substance: ACETAMINOPHEN
  3. ATORVASTATIN [Concomitant]
     Active Substance: ATORVASTATIN
  4. AZITHROMYCIN [Concomitant]
     Active Substance: AZITHROMYCIN
  5. BUDESONIDE [Concomitant]
     Active Substance: BUDESONIDE
  6. DIPHENHYDRAMINE [Concomitant]
     Active Substance: DIPHENHYDRAMINE
  7. FORMOTEROL [Concomitant]
     Active Substance: FORMOTEROL
  8. FUROSEMIDE [Concomitant]
     Active Substance: FUROSEMIDE
  9. GABAPENTIN [Concomitant]
     Active Substance: GABAPENTIN
  10. LOSARTAN [Concomitant]
     Active Substance: LOSARTAN
  11. METOPROLOL TARTRATE [Concomitant]
     Active Substance: METOPROLOL TARTRATE
  12. MONTELUKAST [Concomitant]
     Active Substance: MONTELUKAST
  13. PREDNISONE [Concomitant]
     Active Substance: PREDNISONE
  14. ALBUTEROL [Concomitant]
     Active Substance: ALBUTEROL
  15. ASPIRIN [Concomitant]
     Active Substance: ASPIRIN
  16. CALCIUM CARBONATE [Concomitant]
     Active Substance: CALCIUM CARBONATE
  17. DICYCLOMINE [Concomitant]
     Active Substance: DICYCLOMINE HYDROCHLORIDE
  18. LOMOTIL [Concomitant]
     Active Substance: ATROPINE SULFATE\DIPHENOXYLATE HYDROCHLORIDE
  19. FERROUS SULFATE [Concomitant]
     Active Substance: FERROUS SULFATE
  20. CUVITRU [Concomitant]
     Active Substance: HUMAN IMMUNOGLOBULIN G
  21. EMLA [Concomitant]
     Active Substance: LIDOCAINE\PRILOCAINE
  22. MENTHOL [Concomitant]
     Active Substance: MENTHOL
  23. NITROGLYCERIN [Concomitant]
     Active Substance: NITROGLYCERIN
  24. OFEV [Concomitant]
     Active Substance: NINTEDANIB
  25. OMEPRAZOLE [Concomitant]
     Active Substance: OMEPRAZOLE
  26. OXYBUTYNIN [Concomitant]
     Active Substance: OXYBUTYNIN
  27. RIVAROXABAN [Concomitant]
     Active Substance: RIVAROXABAN
  28. TIZANIDINE [Concomitant]
     Active Substance: TIZANIDINE
  29. VITAMIN D [Concomitant]
     Active Substance: VITAMIN D NOS

REACTIONS (5)
  - Off label use [Unknown]
  - Dyspnoea [Unknown]
  - Lung disorder [Unknown]
  - Fibrosis [Unknown]
  - Bronchitis [Unknown]
